FAERS Safety Report 5786438-9 (Version None)
Quarter: 2008Q2

REPORT INFORMATION
  Report Type: 
  Country: None (occurrence: None)
  Receive Date: 20080624
  Receipt Date: 20080612
  Transmission Date: 20081010
  Serious: Yes (Other)
  Sender: FDA-Public Use
  Company Number: FR-PFIZER INC-2008046946

PATIENT
  Sex: Male
  Weight: 70 kg

DRUGS (4)
  1. LYRICA [Suspect]
     Indication: NEURALGIA
     Dosage: DAILY DOSE:100MG
  2. LYRICA [Suspect]
     Indication: PAIN
  3. MODIODAL [Suspect]
     Indication: ARTERIOSCLEROSIS
     Dosage: FREQ:DAILY
     Route: 048
  4. COPAXONE [Concomitant]
     Route: 058

REACTIONS (2)
  - EPISTAXIS [None]
  - THROMBOCYTOPENIA [None]
